FAERS Safety Report 5409994-9 (Version None)
Quarter: 2007Q3

REPORT INFORMATION
  Report Type: 
  Country: None (occurrence: None)
  Receive Date: 20070713
  Receipt Date: 20070425
  Transmission Date: 20080115
  Serious: No
  Sender: FDA-Public Use
  Company Number: 2007SP001491

PATIENT
  Sex: Female

DRUGS (4)
  1. LUNESTA [Suspect]
     Indication: INSOMNIA
     Dosage: HS;ORAL
     Route: 048
     Dates: start: 20070418, end: 20070421
  2. TRAMADOL HCL [Concomitant]
  3. BACLOFEN [Concomitant]
  4. THIAMIN [Concomitant]

REACTIONS (1)
  - INSOMNIA [None]
